FAERS Safety Report 8859387 (Version 1)
Quarter: 2012Q4

REPORT INFORMATION
  Report Type: Report from Study
  Country: US (occurrence: US)
  Receive Date: 20121024
  Receipt Date: 20121024
  Transmission Date: 20130627
  Serious: Yes (Hospitalization)
  Sender: FDA-Public Use
  Company Number: US-CELGENEUS-163-AB007-11062221

PATIENT
  Age: 64 Year
  Sex: Male
  Weight: 131.66 kg

DRUGS (16)
  1. ABI-007 [Suspect]
     Indication: ADENOCARCINOMA PANCREAS
     Dosage: 125 milligram/sq. meter
     Route: 041
     Dates: start: 20110603
  2. ABI-007 [Suspect]
     Dosage: 125 milligram/sq. meter
     Route: 041
     Dates: start: 20110610, end: 20110617
  3. ABI-007 [Suspect]
     Dosage: 125 milligram/sq. meter
     Route: 041
     Dates: start: 20110628
  4. GEMCITABINE [Suspect]
     Indication: ADENOCARCINOMA PANCREAS
     Dosage: 1000 milligram/sq. meter
     Route: 041
     Dates: start: 20110603
  5. GEMCITABINE [Suspect]
     Dosage: 1000 milligram/sq. meter
     Route: 041
     Dates: start: 20110610, end: 20110617
  6. GEMCITABINE [Suspect]
     Dosage: 1000 milligram/sq. meter
     Route: 041
     Dates: start: 20110628
  7. NORVASC [Concomitant]
     Indication: HYPERTENSION
     Route: 048
     Dates: start: 2010
  8. TYLENOL [Concomitant]
     Indication: PREMEDICATION
     Route: 048
     Dates: start: 20110603
  9. TYLENOL [Concomitant]
     Indication: PROPHYLAXIS
  10. MOTRIN [Concomitant]
     Indication: ANTIPYRESIS
     Route: 048
     Dates: start: 20110603
  11. ALOXI [Concomitant]
     Indication: NAUSEA PROPHYLAXIS
     Route: 041
     Dates: start: 20110603
  12. CIPROFLOXACIN [Concomitant]
     Indication: URINARY TRACT INFECTION
     Route: 048
     Dates: start: 20110605, end: 20110607
  13. BACTRIM DS [Concomitant]
     Indication: URINARY TRACT INFECTION
     Route: 048
     Dates: start: 20110607
  14. AMBIEN [Concomitant]
     Indication: INSOMNIA
     Route: 048
     Dates: start: 20110610
  15. ZOFRAN [Concomitant]
     Indication: NAUSEA
     Route: 048
     Dates: start: 20110605
  16. COMPAZINE [Concomitant]
     Indication: NAUSEA
     Route: 048
     Dates: start: 20110605

REACTIONS (1)
  - Chills [Recovered/Resolved]
